FAERS Safety Report 4623644-0 (Version None)
Quarter: 2005Q1

REPORT INFORMATION
  Report Type: 
  Country: None (occurrence: None)
  Receive Date: 20050331
  Receipt Date: 20050321
  Transmission Date: 20050727
  Serious: Yes (Hospitalization)
  Sender: FDA-Public Use
  Company Number: US-ABBOTT-05P-163-0294730-00

PATIENT
  Sex: Female
  Weight: 54.934 kg

DRUGS (10)
  1. HUMIRA [Suspect]
     Indication: RHEUMATOID ARTHRITIS
     Route: 058
     Dates: start: 20041201
  2. HUMIRA [Suspect]
     Route: 058
     Dates: start: 20040203, end: 20041201
  3. ALENDRONATE SODIUM [Concomitant]
     Indication: OSTEOPOROSIS
     Route: 048
  4. HYDROCODONE [Concomitant]
     Indication: ARTHRALGIA
     Route: 048
  5. PREDNISONE [Concomitant]
     Indication: RHEUMATOID ARTHRITIS
     Route: 048
  6. PROPRANOLOL [Concomitant]
     Indication: BLOOD PRESSURE INCREASED
     Route: 048
  7. FISH OIL [Concomitant]
     Indication: DRUG USE FOR UNKNOWN INDICATION
     Route: 048
  8. CALCIUM CARBONATE [Concomitant]
     Indication: MINERAL SUPPLEMENTATION
     Route: 048
  9. ACETYLSALICYLIC ACID SRT [Concomitant]
     Indication: CARDIAC DISORDER
     Route: 048
  10. FOLIC ACID [Concomitant]
     Indication: RHEUMATOID ARTHRITIS
     Route: 048

REACTIONS (2)
  - FALL [None]
  - HIP FRACTURE [None]
